FAERS Safety Report 24130420 (Version 1)
Quarter: 2024Q3

REPORT INFORMATION
  Report Type: Spontaneous
  Country: US (occurrence: US)
  Receive Date: 20240724
  Receipt Date: 20240724
  Transmission Date: 20241016
  Serious: Yes (Other)
  Sender: BRISTOL MYERS SQUIBB
  Company Number: US-BRISTOL-MYERS SQUIBB COMPANY-2024-113268

PATIENT
  Age: 69 Year
  Sex: Female
  Weight: 71.21 kg

DRUGS (3)
  1. ZEPOSIA [Suspect]
     Active Substance: OZANIMOD HYDROCHLORIDE
     Indication: Colitis ulcerative
     Dosage: DOSE : UNKNOWN;     FREQ : ONE A DAY
     Dates: start: 202406
  2. ZEPOSIA [Suspect]
     Active Substance: OZANIMOD HYDROCHLORIDE
     Dosage: DOSE : UNKNOWN;     FREQ : ONE A DAY
  3. BUDESONIDE [Concomitant]
     Active Substance: BUDESONIDE
     Indication: Product used for unknown indication

REACTIONS (6)
  - Rectal haemorrhage [Not Recovered/Not Resolved]
  - Proctitis [Recovering/Resolving]
  - Abdominal distension [Recovered/Resolved]
  - Mucous stools [Not Recovered/Not Resolved]
  - Defaecation urgency [Not Recovered/Not Resolved]
  - Pain [Recovering/Resolving]
